FAERS Safety Report 12362373 (Version 4)
Quarter: 2016Q2

REPORT INFORMATION
  Report Type: Report from Study
  Country: US (occurrence: US)
  Receive Date: 20160512
  Receipt Date: 20160601
  Transmission Date: 20160815
  Serious: Yes (Other)
  Sender: FDA-Public Use
  Company Number: US-AMGEN-USASP2016059757

PATIENT
  Age: 57 Year
  Sex: Female

DRUGS (1)
  1. ENBREL [Suspect]
     Active Substance: ETANERCEPT
     Indication: PSORIASIS
     Dosage: 50 MG, 2 TIMES/WK
     Route: 058
     Dates: start: 201602

REACTIONS (10)
  - Hip arthroplasty [Unknown]
  - Sciatica [Unknown]
  - Arthritis [Unknown]
  - Decreased immune responsiveness [Unknown]
  - Respiratory tract congestion [Unknown]
  - Psoriasis [Unknown]
  - Sinus disorder [Unknown]
  - Pruritus [Unknown]
  - Bursitis [Unknown]
  - Cough [Unknown]

NARRATIVE: CASE EVENT DATE: 201304
